FAERS Safety Report 6139963-5 (Version None)
Quarter: 2009Q1

REPORT INFORMATION
  Report Type: 
  Country: None (occurrence: None)
  Receive Date: 20090331
  Receipt Date: 20090331
  Transmission Date: 20090719
  Serious: Yes (Other)
  Sender: FDA-Public Use
  Company Number: None

PATIENT
  Age: 52 Year
  Sex: Female
  Weight: 46.2669 kg

DRUGS (1)
  1. LEVAQUIN [Suspect]
     Indication: ANTIBIOTIC PROPHYLAXIS
     Dosage: 1 ONCE DAILY PO
     Route: 048
     Dates: start: 20090326, end: 20090329

REACTIONS (3)
  - BURNING SENSATION [None]
  - PRURITUS GENERALISED [None]
  - RASH [None]
